FAERS Safety Report 5241933-6 (Version None)
Quarter: 2007Q1

REPORT INFORMATION
  Report Type: 
  Country: None (occurrence: None)
  Receive Date: 20070220
  Receipt Date: 20070208
  Transmission Date: 20070707
  Serious: Yes (Hospitalization)
  Sender: FDA-Public Use
  Company Number: FR-PFIZER INC-2007011672

PATIENT
  Age: 23 Year
  Sex: Female

DRUGS (1)
  1. DOSTINEX [Suspect]
     Indication: PROLACTINOMA
     Route: 048

REACTIONS (4)
  - HEADACHE [None]
  - MUSCLE SPASMS [None]
  - RAYNAUD'S PHENOMENON [None]
  - VASOCONSTRICTION [None]
